FAERS Safety Report 14321290 (Version 9)
Quarter: 2023Q2

REPORT INFORMATION
  Report Type: Spontaneous
  Country: DE (occurrence: DE)
  Receive Date: 20171223
  Receipt Date: 20230504
  Transmission Date: 20230721
  Serious: Yes (Life-Threatening, Hospitalization, Other)
  Sender: FDA-Public Use
  Company Number: PHHY2017DE187788

PATIENT
  Age: 65 Year
  Sex: Male
  Weight: 90 kg

DRUGS (23)
  1. DOCETAXEL [Suspect]
     Active Substance: DOCETAXEL
     Indication: Lung adenocarcinoma
     Dosage: 150 MG/M2, QD (BSA (BODY SURFACE AREA))
     Route: 042
     Dates: start: 20170418
  2. NINTEDANIB [Suspect]
     Active Substance: NINTEDANIB
     Indication: Lung adenocarcinoma
     Dosage: 400 MG, QD
     Route: 048
     Dates: start: 20170419, end: 20170424
  3. NINTEDANIB [Suspect]
     Active Substance: NINTEDANIB
     Dosage: 200 MG, QD
     Route: 048
     Dates: end: 20170620
  4. NINTEDANIB [Suspect]
     Active Substance: NINTEDANIB
     Dosage: 400 MG, QD
     Route: 048
     Dates: end: 20170620
  5. NINTEDANIB [Suspect]
     Active Substance: NINTEDANIB
     Dosage: 200 MG, QD
     Route: 048
     Dates: end: 20171006
  6. NINTEDANIB [Suspect]
     Active Substance: NINTEDANIB
     Dosage: 2 DOSAGE FORM, QD
     Route: 048
     Dates: end: 20180103
  7. NINTEDANIB [Suspect]
     Active Substance: NINTEDANIB
     Dosage: 400 MG
     Route: 048
     Dates: end: 20171006
  8. NINTEDANIB [Suspect]
     Active Substance: NINTEDANIB
     Dosage: 200 MG (0.5 DAY)
     Route: 048
     Dates: start: 20170419, end: 20170425
  9. NINTEDANIB [Suspect]
     Active Substance: NINTEDANIB
     Dosage: 200 MG (0.5 DAY)
     Route: 048
     Dates: end: 20170620
  10. NINTEDANIB [Suspect]
     Active Substance: NINTEDANIB
     Dosage: 200 MG (0.5 DAY)
     Route: 048
     Dates: end: 20171006
  11. NINTEDANIB [Suspect]
     Active Substance: NINTEDANIB
     Dosage: UNK (0.5 DAY)
     Route: 048
     Dates: end: 20180103
  12. NORVASC [Concomitant]
     Active Substance: AMLODIPINE BESYLATE
     Indication: Prophylaxis
     Dosage: 5 MG, QD
     Route: 048
     Dates: start: 20170425
  13. ASPIRIN [Concomitant]
     Active Substance: ASPIRIN
     Indication: Pre-existing disease
     Dosage: 100 MG, QD
     Route: 048
     Dates: start: 20170414
  14. ALDACTONE [Concomitant]
     Active Substance: SPIRONOLACTONE
     Indication: Prophylaxis
     Dosage: 25 MG, QD
     Route: 048
     Dates: start: 20161124
  15. LOESNESIUM [Concomitant]
     Indication: Prophylaxis
     Dosage: UNK
     Route: 048
  16. SODIUM CHLORIDE [Concomitant]
     Active Substance: SODIUM CHLORIDE
     Indication: Prophylaxis
     Dosage: 1000 ML, QD
     Route: 042
     Dates: start: 20170428
  17. AQUAPHOR [Concomitant]
     Active Substance: PETROLATUM
     Indication: Pre-existing disease
     Dosage: 10 MG, QD (FORM OF ADMIN: OTHER)
     Route: 048
  18. LEVOTHYROXINENATRIUM TEVA [Concomitant]
     Indication: Pre-existing disease
     Dosage: 0.05 MG, QD
     Route: 048
  19. ACLIDINIUM BROMIDE [Concomitant]
     Active Substance: ACLIDINIUM BROMIDE
     Indication: Pre-existing disease
     Dosage: 322 UG, QD
     Route: 055
  20. SYMBICORT [Concomitant]
     Active Substance: BUDESONIDE\FORMOTEROL FUMARATE DIHYDRATE
     Indication: Pre-existing disease
     Dosage: 4.5 MG, QD
     Route: 055
  21. PANTOPRAZOLE SODIUM [Concomitant]
     Active Substance: PANTOPRAZOLE SODIUM
     Indication: Prophylaxis
     Dosage: UNK
     Route: 048
     Dates: start: 20170501
  22. PREDNISOLONE [Concomitant]
     Active Substance: PREDNISOLONE
     Indication: Pre-existing disease
     Dosage: 15 MG, QD
     Route: 048
  23. HYALURONATE SODIUM [Concomitant]
     Active Substance: HYALURONATE SODIUM
     Indication: Adverse event
     Dosage: 3 MG, QD ( GEL MULTI 10 ML AUGENTROPFEN)
     Route: 031
     Dates: start: 20170509

REACTIONS (19)
  - Stomatitis [Recovered/Resolved]
  - Febrile neutropenia [Recovered/Resolved]
  - C-reactive protein increased [Recovered/Resolved]
  - Tumour pain [Not Recovered/Not Resolved]
  - Bronchitis [Recovered/Resolved]
  - C-reactive protein increased [Recovered/Resolved]
  - White blood cell count decreased [Recovered/Resolved]
  - White blood cell count decreased [Recovered/Resolved]
  - Palmar-plantar erythrodysaesthesia syndrome [Not Recovered/Not Resolved]
  - Neutrophil count decreased [Recovered/Resolved]
  - Hypokalaemia [Recovered/Resolved]
  - Decreased appetite [Recovered/Resolved]
  - Weight decreased [Recovered/Resolved]
  - Diarrhoea [Unknown]
  - Nausea [Recovered/Resolved]
  - Constipation [Recovered/Resolved]
  - Hyponatraemia [Not Recovered/Not Resolved]
  - Abdominal pain upper [Recovered/Resolved]
  - Vision blurred [Not Recovered/Not Resolved]

NARRATIVE: CASE EVENT DATE: 20170425
